FAERS Safety Report 7717469-7 (Version None)
Quarter: 2011Q3

REPORT INFORMATION
  Report Type: 
  Country: None (occurrence: None)
  Receive Date: 20110830
  Receipt Date: 20110802
  Transmission Date: 20111222
  Serious: Yes (Other)
  Sender: FDA-Public Use
  Company Number: US-KINGPHARMUSA00001-K201100926

PATIENT
  Sex: Female

DRUGS (3)
  1. LORTAB [Suspect]
     Dosage: UNK
  2. EMBEDA [Suspect]
     Dosage: UNK
  3. BUTRANS [Suspect]
     Dosage: UNK PATCH, UNK
     Route: 062

REACTIONS (2)
  - DRUG WITHDRAWAL SYNDROME [None]
  - UNRESPONSIVE TO STIMULI [None]
